FAERS Safety Report 26111236 (Version 1)
Quarter: 2025Q4

REPORT INFORMATION
  Report Type: Other
  Country: US (occurrence: None)
  Receive Date: 20251202
  Receipt Date: 20251202
  Transmission Date: 20260118
  Serious: No
  Sender: APOTEX
  Company Number: US-APOTEX-2025AP032600

PATIENT

DRUGS (2)
  1. DASATINIB [Suspect]
     Active Substance: DASATINIB
     Indication: Chronic myeloid leukaemia
     Dosage: UNK
     Route: 065
  2. DASATINIB [Suspect]
     Active Substance: DASATINIB
     Indication: Philadelphia chromosome test

REACTIONS (7)
  - Hypoaesthesia [Unknown]
  - Swelling face [Unknown]
  - Lip swelling [Unknown]
  - Oropharyngeal pain [Unknown]
  - Product quality issue [Unknown]
  - Dyspnoea [Unknown]
  - Urticaria [Unknown]
